FAERS Safety Report 24875381 (Version 1)
Quarter: 2025Q1

REPORT INFORMATION
  Report Type: Spontaneous
  Country: DE (occurrence: DE)
  Receive Date: 20250122
  Receipt Date: 20250122
  Transmission Date: 20250409
  Serious: Yes (Other)
  Sender: GILEAD
  Company Number: DE-GILEAD-2025-0700879

PATIENT
  Age: 61 Year
  Sex: Male
  Weight: 90 kg

DRUGS (27)
  1. YESCARTA [Suspect]
     Active Substance: AXICABTAGENE CILOLEUCEL
     Indication: Product used for unknown indication
     Route: 065
  2. ANAKINRA [Concomitant]
     Active Substance: ANAKINRA
     Dates: start: 20230513, end: 20230513
  3. IMMUNGLOBULIN [Concomitant]
     Dates: start: 20230517, end: 20230628
  4. ALLOPURINOL [Concomitant]
     Active Substance: ALLOPURINOL
  5. ELIQUIS [Concomitant]
     Active Substance: APIXABAN
  6. ACETAMINOPHEN [Concomitant]
     Active Substance: ACETAMINOPHEN
  7. METAMIZOLE [Concomitant]
     Active Substance: METAMIZOLE
  8. METOCLOPRAMIDE HYDROCHLORIDE [Concomitant]
     Active Substance: METOCLOPRAMIDE HYDROCHLORIDE
  9. NUTRISON ENERGY MULTI FIBER [Concomitant]
  10. SULFAMETHOXAZOLE\TRIMETHOPRIM [Concomitant]
     Active Substance: SULFAMETHOXAZOLE\TRIMETHOPRIM
  11. NEXIUM I.V. [Concomitant]
     Active Substance: ESOMEPRAZOLE SODIUM
  12. AMLODIPINE BESYLATE [Concomitant]
     Active Substance: AMLODIPINE BESYLATE
  13. BISOPROLOL FUMARATE [Concomitant]
     Active Substance: BISOPROLOL FUMARATE
  14. CANDESARTAN CILEXETIL [Concomitant]
     Active Substance: CANDESARTAN CILEXETIL
  15. MOXONIDINE RATIOPHARM [Concomitant]
  16. LEVETIRACETAM [Concomitant]
     Active Substance: LEVETIRACETAM
  17. POSACONAZOLE [Concomitant]
     Active Substance: POSACONAZOLE
  18. KINERET [Concomitant]
     Active Substance: ANAKINRA
  19. DOXACOR [DOXAZOSIN MESILATE] [Concomitant]
  20. FOLIC ACID [Concomitant]
     Active Substance: FOLIC ACID
  21. SODIUM PICOSULFATE [Concomitant]
     Active Substance: SODIUM PICOSULFATE
  22. KONAKION [Concomitant]
     Active Substance: PHYTONADIONE
  23. ACYCLOVIR SODIUM [Concomitant]
     Active Substance: ACYCLOVIR SODIUM
  24. CALCITRIOL [Concomitant]
     Active Substance: CALCITRIOL
  25. SCOPOLAMINE [Concomitant]
     Active Substance: SCOPOLAMINE
  26. PREDNISOLONE [Concomitant]
     Active Substance: PREDNISOLONE
  27. PIPERACILLIN AND TAZOBACTAM [Concomitant]
     Active Substance: PIPERACILLIN SODIUM\TAZOBACTAM SODIUM

REACTIONS (5)
  - Septic shock [Unknown]
  - Immune effector cell-associated neurotoxicity syndrome [Unknown]
  - Haemophagocytic lymphohistiocytosis [Unknown]
  - Seizure [Unknown]
  - Renal failure [Unknown]

NARRATIVE: CASE EVENT DATE: 20230513
